FAERS Safety Report 9382912 (Version 1)
Quarter: 2013Q3

REPORT INFORMATION
  Report Type: Spontaneous
  Country: US (occurrence: US)
  Receive Date: 20130703
  Receipt Date: 20130703
  Transmission Date: 20140515
  Serious: Yes (Other)
  Sender: FDA-Public Use
  Company Number: US-BAXTER-2013BAX025404

PATIENT
  Sex: Male

DRUGS (6)
  1. VANCOMYCIN INJECTION, USP [Suspect]
     Indication: MENINGITIS STAPHYLOCOCCAL
     Dosage: WAS ORDERED FOR 14 DAY COURSE
     Route: 042
  2. VANCOMYCIN INJECTION, USP [Suspect]
     Dosage: HOME IV THERAPY
     Route: 042
  3. PIOGLITAZONE [Concomitant]
     Indication: PRODUCT USED FOR UNKNOWN INDICATION
     Route: 065
  4. ROSUVASTATIN [Concomitant]
     Indication: PRODUCT USED FOR UNKNOWN INDICATION
     Route: 065
  5. MONTELUKAST [Concomitant]
     Indication: PRODUCT USED FOR UNKNOWN INDICATION
     Route: 065
  6. BUDESONIDE W/FORMOTEROL FUMARATE [Concomitant]
     Indication: PRODUCT USED FOR UNKNOWN INDICATION
     Route: 065

REACTIONS (1)
  - Meningitis eosinophilic [Recovered/Resolved]
